FAERS Safety Report 4612370-X (Version None)
Quarter: 2005Q1

REPORT INFORMATION
  Report Type: 
  Country: None (occurrence: None)
  Receive Date: 20050316
  Receipt Date: 20050228
  Transmission Date: 20050727
  Serious: Yes (Hospitalization)
  Sender: FDA-Public Use
  Company Number: USA050392011

PATIENT
  Sex: Female

DRUGS (1)
  1. FORTEO [Suspect]
     Dates: start: 20040101

REACTIONS (5)
  - BRONCHITIS [None]
  - GALLBLADDER DISORDER [None]
  - HYPOACUSIS [None]
  - PHARMACEUTICAL PRODUCT COMPLAINT [None]
  - TYMPANIC MEMBRANE PERFORATION [None]
